FAERS Safety Report 17195706 (Version 3)
Quarter: 2020Q1

REPORT INFORMATION
  Report Type: Report from Study
  Country: None (occurrence: CA)
  Receive Date: 20191224
  Receipt Date: 20200323
  Transmission Date: 20200409
  Serious: Yes (Hospitalization, Other)
  Sender: FDA-Public Use
  Company Number: CA-ABBVIE-19K-028-3205537-00

PATIENT
  Age: 81 Year
  Sex: Male

DRUGS (1)
  1. DUODOPA [Suspect]
     Active Substance: CARBIDOPA\LEVODOPA
     Indication: PARKINSON^S DISEASE
     Dosage: 3.3 ML/ HR FOR 24 HR AS NEEDED
     Route: 050
     Dates: start: 20170510

REACTIONS (10)
  - Agitation [Unknown]
  - Lower respiratory tract infection [Unknown]
  - Food interaction [Unknown]
  - Therapeutic product effect incomplete [Unknown]
  - Helminthic infection [Recovered/Resolved]
  - On and off phenomenon [Unknown]
  - Device dislocation [Unknown]
  - Delirium [Unknown]
  - Bradykinesia [Unknown]
  - Device connection issue [Unknown]

NARRATIVE: CASE EVENT DATE: 20191217
